FAERS Safety Report 8529375-9 (Version None)
Quarter: 2012Q3

REPORT INFORMATION
  Report Type: 
  Country: None (occurrence: None)
  Receive Date: 20120717
  Receipt Date: 20120717
  Transmission Date: 20120928
  Serious: Yes (Hospitalization)
  Sender: FDA-Public Use
  Company Number: None

PATIENT

DRUGS (1)
  1. ENOXAPARIN SODIUM [Suspect]
     Dosage: INJECTABLE INJECTION 120 MG/0.8 ML

REACTIONS (1)
  - INTERCEPTED DRUG DISPENSING ERROR [None]
